FAERS Safety Report 9160386 (Version 1)
Quarter: 2013Q1

REPORT INFORMATION
  Report Type: Spontaneous
  Country: ES (occurrence: None)
  Receive Date: 20130219
  Receipt Date: 20130219
  Transmission Date: 20140127
  Serious: Yes (Hospitalization)
  Sender: FDA-Public Use
  Company Number: 2013-000419

PATIENT
  Sex: 0

DRUGS (1)
  1. ACTONEL (RISEDRONATE SODIUM) TABLET [Suspect]
     Route: 048

REACTIONS (1)
  - Hyperkalaemia [None]
